FAERS Safety Report 17845449 (Version 3)
Quarter: 2020Q2

REPORT INFORMATION
  Report Type: Spontaneous
  Country: US (occurrence: US)
  Receive Date: 20200601
  Receipt Date: 20200628
  Transmission Date: 20200714
  Serious: Yes (Death, Life-Threatening, Hospitalization, Other)
  Sender: FDA-Public Use
  Company Number: US-JNJFOC-20200530180

PATIENT
  Age: 41 Year
  Sex: Female

DRUGS (1)
  1. PARACETAMOL [Suspect]
     Active Substance: ACETAMINOPHEN
     Indication: PRODUCT USED FOR UNKNOWN INDICATION
     Dosage: INGESTED APPROXIMATELY 500 TABLETS OF ACETAMINOPHEN; IN TOTAL
     Route: 048

REACTIONS (7)
  - Metabolic acidosis [Not Recovered/Not Resolved]
  - Alanine aminotransferase increased [Unknown]
  - Intentional overdose [Fatal]
  - Suicide attempt [Fatal]
  - Aspartate aminotransferase increased [Unknown]
  - Hypoperfusion [Not Recovered/Not Resolved]
  - Multiple organ dysfunction syndrome [Fatal]
